FAERS Safety Report 5036946-3 (Version None)
Quarter: 2006Q2

REPORT INFORMATION
  Report Type: 
  Country: None (occurrence: None)
  Receive Date: 20060622
  Receipt Date: 20060613
  Transmission Date: 20061013
  Serious: Yes (Death)
  Sender: FDA-Public Use
  Company Number: 2006-05-0558

PATIENT
  Age: 30 Year
  Sex: Male

DRUGS (3)
  1. PEG-INTRON [Suspect]
     Indication: HEPATITIS C
     Dosage: 150 MGC QWK
     Dates: start: 20051201
  2. REBETOL [Suspect]
     Indication: HEPATITIS C
     Dosage: 600 MG BID ORAL
     Route: 048
     Dates: start: 20051201
  3. INSULIN [Concomitant]

REACTIONS (3)
  - ANAEMIA [None]
  - THROMBOTIC THROMBOCYTOPENIC PURPURA [None]
  - TREATMENT NONCOMPLIANCE [None]
